FAERS Safety Report 8292356 (Version 2)
Quarter: 2013Q2

REPORT INFORMATION
  Report Type: Spontaneous
  Country: US (occurrence: None)
  Receive Date: 20111122
  Receipt Date: 20120703
  Transmission Date: 20140414
  Serious: No
  Sender: FDA-Public Use
  Company Number: PHEH2011US01844

PATIENT
  Age: 58 Year
  Sex: Female
  Weight: 72.6 kg

DRUGS (4)
  1. GILENYA [Suspect]
     Dosage: 0.5 MG, QD, ORAL
     Route: 048
     Dates: start: 20110805
  2. BACLOFEN (BACLOFEN) [Concomitant]
  3. VITAMIN D (ERGOCALCIFEROL) [Concomitant]
  4. ASPIRIN (ACETYLSALICYLIC ACID) [Concomitant]

REACTIONS (5)
  - VISION BLURRED [None]
  - DYSPNOEA [None]
  - FATIGUE [None]
  - Hypoaesthesia [None]
  - Paraesthesia [None]
